FAERS Safety Report 4749765-X (Version None)
Quarter: 2005Q3

REPORT INFORMATION
  Report Type: 
  Country: None (occurrence: None)
  Receive Date: 20050822
  Receipt Date: 20011119
  Transmission Date: 20060218
  Serious: Yes (Hospitalization)
  Sender: FDA-Public Use
  Company Number: 11604600

PATIENT
  Age: 52 Year
  Sex: Male

DRUGS (5)
  1. EFAVIRENZ [Suspect]
     Indication: HIV INFECTION
     Route: 048
     Dates: start: 19991102
  2. INDINAVIR SULFATE [Suspect]
     Indication: HIV INFECTION
     Route: 048
     Dates: start: 19991102, end: 20040707
  3. ZIAGEN [Suspect]
     Indication: HIV INFECTION
     Route: 048
     Dates: start: 19991102
  4. RITONAVIR [Suspect]
     Indication: HIV INFECTION
     Dosage: 800 MG/DAY 02-NOV-1999TO07-JUL-2004, 100MG/DAY 08-JUL-2004 TO CON'T.
     Route: 048
     Dates: start: 19991102
  5. PENTAMIDINE ISETHIONATE [Concomitant]
     Indication: PNEUMOCYSTIS JIROVECI PNEUMONIA
     Dates: start: 19991102, end: 20010417

REACTIONS (2)
  - HYPERLIPIDAEMIA [None]
  - PULMONARY TUBERCULOSIS [None]
